FAERS Safety Report 11095446 (Version 6)
Quarter: 2015Q3

REPORT INFORMATION
  Report Type: Report from Study
  Country: US (occurrence: US)
  Receive Date: 20150506
  Receipt Date: 20150914
  Transmission Date: 20151125
  Serious: Yes (Hospitalization, Disabling)
  Sender: FDA-Public Use
  Company Number: US-ACTELION-A-NJ2015-117430

PATIENT
  Age: 68 Year
  Sex: Female

DRUGS (5)
  1. WARFARIN [Concomitant]
     Active Substance: WARFARIN
  2. ADCIRCA [Concomitant]
     Active Substance: TADALAFIL
  3. ONDANSETRON [Concomitant]
     Active Substance: ONDANSETRON
  4. OPSUMIT [Suspect]
     Active Substance: MACITENTAN
     Indication: PULMONARY ARTERIAL HYPERTENSION
     Dosage: 10 MG, QD
     Route: 048
     Dates: start: 20140325, end: 2015
  5. VELETRI [Suspect]
     Active Substance: EPOPROSTENOL
     Indication: PULMONARY ARTERIAL HYPERTENSION
     Dosage: 19.5 NG/KG, PER MIN
     Route: 042
     Dates: start: 20130905

REACTIONS (8)
  - Procedural complication [Recovered/Resolved]
  - Aspartate aminotransferase increased [Unknown]
  - Hernia repair [Recovered/Resolved]
  - Electrolyte imbalance [Unknown]
  - Diarrhoea [Not Recovered/Not Resolved]
  - Blood potassium decreased [Not Recovered/Not Resolved]
  - Liver function test abnormal [Unknown]
  - Blood alkaline phosphatase increased [Unknown]

NARRATIVE: CASE EVENT DATE: 20150427
